FAERS Safety Report 9307164 (Version 2)
Quarter: 2013Q2

REPORT INFORMATION
  Report Type: Spontaneous
  Country: IT (occurrence: IT)
  Receive Date: 20130524
  Receipt Date: 20130625
  Transmission Date: 20140414
  Serious: Yes (Hospitalization)
  Sender: FDA-Public Use
  Company Number: IT-PFIZER INC-2013159236

PATIENT
  Age: 63 Year
  Sex: Male
  Weight: 82 kg

DRUGS (4)
  1. CAMPTO [Suspect]
     Indication: COLON CANCER
     Dosage: 350 MG, CYCLIC
     Route: 042
     Dates: start: 20130304, end: 20130402
  2. FLUOROURACIL [Concomitant]
     Indication: COLON CANCER
     Dosage: 2430 MG, UNK
     Route: 042
     Dates: start: 20130304, end: 20130403
  3. FLUOROURACIL ^TEVA^ [Concomitant]
     Indication: COLON CANCER
     Dosage: 780 MG, UNK
     Route: 042
     Dates: start: 20130304, end: 20130403
  4. AVASTIN [Concomitant]
     Indication: COLON CANCER
     Dosage: 410 MG, UNK
     Route: 042
     Dates: start: 20130304, end: 20130402

REACTIONS (2)
  - Enteritis [Recovered/Resolved]
  - Electrolyte imbalance [Recovered/Resolved]
